FAERS Safety Report 16989891 (Version 1)
Quarter: 2019Q4

REPORT INFORMATION
  Report Type: Spontaneous
  Country: US (occurrence: US)
  Receive Date: 20190919
  Receipt Date: 20190919
  Transmission Date: 20200122
  Serious: Yes (Death, Hospitalization)
  Sender: FDA-Public Use
  Company Number: None

PATIENT
  Age: 63 Year
  Sex: Male
  Weight: 94.7 kg

DRUGS (4)
  1. HYDROCORTISONE. [Suspect]
     Active Substance: HYDROCORTISONE
     Dates: end: 20190715
  2. VINCRISTINE SULFATE. [Suspect]
     Active Substance: VINCRISTINE SULFATE
     Dates: end: 20190715
  3. MERCAPTOPURINE. [Suspect]
     Active Substance: MERCAPTOPURINE
     Dates: end: 20190908
  4. METHOTREXATE. [Suspect]
     Active Substance: METHOTREXATE
     Dates: end: 20190715

REACTIONS (13)
  - Asthenia [None]
  - Fatigue [None]
  - Refusal of treatment by patient [None]
  - Respiration abnormal [None]
  - Hypotension [None]
  - Respiratory failure [None]
  - Vomiting [None]
  - Unresponsive to stimuli [None]
  - Malaise [None]
  - Agitation [None]
  - Disorientation [None]
  - Balance disorder [None]
  - Haematemesis [None]

NARRATIVE: CASE EVENT DATE: 20190909
